FAERS Safety Report 8164384-3 (Version None)
Quarter: 2012Q1

REPORT INFORMATION
  Report Type: 
  Country: None (occurrence: None)
  Receive Date: 20120224
  Receipt Date: 20120215
  Transmission Date: 20120608
  Serious: Yes (Other)
  Sender: FDA-Public Use
  Company Number: US-ASTRAZENECA-2011SE58184

PATIENT
  Age: 90 Year
  Sex: Male

DRUGS (11)
  1. LISINOPRIL [Concomitant]
  2. VITAMIN D [Concomitant]
  3. FERROUS SULFATE TAB [Concomitant]
  4. SIMVASTATIN [Suspect]
     Route: 065
  5. ATENOLOL [Concomitant]
  6. ASPIRIN [Concomitant]
  7. VITAMIN B-12 [Concomitant]
  8. HUMULIN R [Concomitant]
  9. CRESTOR [Suspect]
     Route: 048
  10. NITRO DCR [Concomitant]
  11. OMEPRAZOLE [Concomitant]

REACTIONS (5)
  - PAIN [None]
  - BEDRIDDEN [None]
  - BACK PAIN [None]
  - DRUG NAME CONFUSION [None]
  - FALL [None]
